FAERS Safety Report 18791423 (Version 1)
Quarter: 2021Q1

REPORT INFORMATION
  Report Type: Spontaneous
  Country: AU (occurrence: AU)
  Receive Date: 20210126
  Receipt Date: 20210126
  Transmission Date: 20210419
  Serious: Yes (Other)
  Sender: FDA-Public Use
  Company Number: AU-ANIPHARMA-2021-AU-000026

PATIENT
  Sex: Female

DRUGS (10)
  1. CARBOPLATIN. [Suspect]
     Active Substance: CARBOPLATIN
     Route: 065
  2. EVEROLIMUS. [Suspect]
     Active Substance: EVEROLIMUS
     Route: 065
  3. LETROZOLE. [Suspect]
     Active Substance: LETROZOLE
     Route: 065
  4. EXEMESTANE. [Suspect]
     Active Substance: EXEMESTANE
     Route: 065
  5. PACLITAXEL. [Suspect]
     Active Substance: PACLITAXEL
     Route: 065
  6. ANASTROZOLE. [Suspect]
     Active Substance: ANASTROZOLE
     Indication: PRODUCT USED FOR UNKNOWN INDICATION
     Route: 048
  7. TAMOXIFEN [Suspect]
     Active Substance: TAMOXIFEN
     Route: 048
  8. GEMCITABINE HYDROCHLORIDE. [Suspect]
     Active Substance: GEMCITABINE HYDROCHLORIDE
     Route: 065
  9. EPIRUBICIN HYDROCHLORIDE. [Suspect]
     Active Substance: EPIRUBICIN HYDROCHLORIDE
     Route: 065
  10. ERIBULIN MESYLATE [Suspect]
     Active Substance: ERIBULIN MESYLATE
     Route: 065

REACTIONS (4)
  - Hormone receptor positive breast cancer [Unknown]
  - Malignant neoplasm progression [Unknown]
  - Breast cancer metastatic [Unknown]
  - PIK3CA-activated mutation [Unknown]
